FAERS Safety Report 11286500 (Version 2)
Quarter: 2015Q3

REPORT INFORMATION
  Report Type: Report from Study
  Country: US (occurrence: US)
  Receive Date: 20150721
  Receipt Date: 20150807
  Transmission Date: 20151125
  Serious: Yes (Other)
  Sender: FDA-Public Use
  Company Number: US-GILEAD-2015-0162815

PATIENT
  Age: 66 Year
  Sex: Male

DRUGS (2)
  1. REVATIO [Concomitant]
     Active Substance: SILDENAFIL CITRATE
  2. AMBRISENTAN [Suspect]
     Active Substance: AMBRISENTAN
     Indication: PRODUCT USED FOR UNKNOWN INDICATION
     Dosage: 5 MG, QD
     Route: 065
     Dates: start: 20131223

REACTIONS (6)
  - Nasal congestion [Unknown]
  - Fatigue [Unknown]
  - Oxygen saturation decreased [Unknown]
  - Plasma cell myeloma [Unknown]
  - Dizziness [Unknown]
  - Anaemia [Unknown]
